FAERS Safety Report 14057747 (Version 2)
Quarter: 2017Q4

REPORT INFORMATION
  Report Type: Spontaneous
  Country: CO (occurrence: CO)
  Receive Date: 20171006
  Receipt Date: 20171114
  Transmission Date: 20180321
  Serious: Yes (Hospitalization)
  Sender: FDA-Public Use
  Company Number: CO-PFIZER INC-2017425881

PATIENT
  Age: 15 Year
  Sex: Female

DRUGS (5)
  1. FOLIC ACID. [Concomitant]
     Active Substance: FOLIC ACID
     Dosage: UNK
  2. METHOTREXATE. [Suspect]
     Active Substance: METHOTREXATE
     Dosage: UNK
     Route: 048
     Dates: start: 2015
  3. CALCIUM [Concomitant]
     Active Substance: CALCIUM
  4. METHOTREXATE. [Suspect]
     Active Substance: METHOTREXATE
     Indication: JUVENILE IDIOPATHIC ARTHRITIS
     Dosage: 8 DF, WEEKLY
     Route: 048
     Dates: start: 2015
  5. PREDNISOLONE. [Concomitant]
     Active Substance: PREDNISOLONE
     Dosage: UNK

REACTIONS (7)
  - Inflammation [Recovering/Resolving]
  - Headache [Recovering/Resolving]
  - Mobility decreased [Recovering/Resolving]
  - Arthralgia [Recovering/Resolving]
  - Tuberculin test positive [Not Recovered/Not Resolved]
  - Arthritis [Recovering/Resolving]
  - Gait inability [Recovering/Resolving]

NARRATIVE: CASE EVENT DATE: 201706
